FAERS Safety Report 13735730 (Version 1)
Quarter: 2017Q3

REPORT INFORMATION
  Report Type: Spontaneous
  Country: US (occurrence: US)
  Receive Date: 20170708
  Receipt Date: 20170708
  Transmission Date: 20171127
  Serious: Yes (Other)
  Sender: FDA-Public Use
  Company Number: None

PATIENT
  Age: 74 Year
  Sex: Male
  Weight: 85.5 kg

DRUGS (7)
  1. CEPHALEXIN. [Suspect]
     Active Substance: CEPHALEXIN
     Indication: PROPHYLAXIS
     Dosage: ?          OTHER STRENGTH:MG;QUANTITY:6 CAPSULE(S);?
     Route: 048
     Dates: start: 20170702, end: 20170703
  2. MULTIVITAMIN MINERALS CAPS [Concomitant]
  3. CEPHALEXIN. [Suspect]
     Active Substance: CEPHALEXIN
     Indication: POSTOPERATIVE CARE
     Dosage: ?          OTHER STRENGTH:MG;QUANTITY:6 CAPSULE(S);?
     Route: 048
     Dates: start: 20170702, end: 20170703
  4. MINOXIDIL. [Concomitant]
     Active Substance: MINOXIDIL
  5. FUROSEMIDE. [Concomitant]
     Active Substance: FUROSEMIDE
  6. VITAMIN K [Concomitant]
     Active Substance: PHYTONADIONE
  7. VITAMIN D3 [Concomitant]
     Active Substance: CHOLECALCIFEROL

REACTIONS (6)
  - Eye pruritus [None]
  - Pharyngeal oedema [None]
  - Eye swelling [None]
  - Pharyngeal erythema [None]
  - Drug hypersensitivity [None]
  - Swelling face [None]

NARRATIVE: CASE EVENT DATE: 20170704
